FAERS Safety Report 8358477-5 (Version None)
Quarter: 2012Q2

REPORT INFORMATION
  Report Type: 
  Country: None (occurrence: None)
  Receive Date: 20120514
  Receipt Date: 20120507
  Transmission Date: 20120825
  Serious: Yes (Other)
  Sender: FDA-Public Use
  Company Number: US-BAYER-2011-105964

PATIENT
  Age: 37 Year
  Sex: Female

DRUGS (16)
  1. TRAMADOL HYDROCHLORIDE [Concomitant]
     Dosage: UNK
     Dates: start: 20080813
  2. VIGAMOX [Concomitant]
     Dosage: 0.5 %, UNK
     Route: 047
     Dates: start: 20080820
  3. PREDNISONE [Concomitant]
     Dosage: 10 MG, UNK
     Dates: start: 20080822
  4. MOTRIN [Concomitant]
  5. AZITHROMYCIN [Concomitant]
     Dosage: 500 MG, UNK
     Dates: start: 20080822
  6. DILAUDID [Concomitant]
     Dosage: 1 MG, UNK
     Dates: start: 20080920
  7. HYDROCODONE BITARTRATE AND ACETAMINOPHEN [Concomitant]
     Dosage: 5MG/500MG
     Dates: start: 20080710
  8. PERCOCET [Concomitant]
     Dosage: UNK
     Dates: start: 20090920
  9. PROMETHAZINE DM [Concomitant]
     Dosage: UNK
     Dates: start: 20080820
  10. NORFLEX [Concomitant]
     Dosage: 60 MG, UNK
     Dates: start: 20090920
  11. AMITRIPTYLINE HCL [Concomitant]
  12. NEURONTIN [Concomitant]
     Dosage: UNK
     Dates: start: 20080919
  13. YAZ [Suspect]
     Dosage: UNK
     Dates: start: 20080701, end: 20080901
  14. VALTREX [Concomitant]
     Indication: HERPES SIMPLEX
  15. AMOXICILLIN [Concomitant]
     Dosage: 875 MG, UNK
     Dates: start: 20080820
  16. ORPHENADRINE CITRATE [Concomitant]
     Dosage: 100 UNK, UNK
     Dates: start: 20080822

REACTIONS (6)
  - INJURY [None]
  - ANXIETY [None]
  - PAIN [None]
  - DEEP VEIN THROMBOSIS [None]
  - EMOTIONAL DISTRESS [None]
  - GENERAL PHYSICAL HEALTH DETERIORATION [None]
